FAERS Safety Report 20547491 (Version 1)
Quarter: 2022Q1

REPORT INFORMATION
  Report Type: Spontaneous
  Country: MX (occurrence: MX)
  Receive Date: 20220303
  Receipt Date: 20220303
  Transmission Date: 20220423
  Serious: Yes (Life-Threatening, Other)
  Sender: FDA-Public Use
  Company Number: MX-NOVARTISPH-NVSC2022MX050446

PATIENT
  Sex: Male
  Weight: 43 kg

DRUGS (2)
  1. MYFORTIC [Suspect]
     Active Substance: MYCOPHENOLATE SODIUM
     Indication: Renal transplant
     Dosage: 1 DOSAGE FORM, Q12H
     Route: 048
     Dates: start: 2009
  2. OLANZAPINE [Suspect]
     Active Substance: OLANZAPINE
     Indication: Psychotic disorder
     Dosage: 1 DOSAGE FORM, QD
     Route: 048
     Dates: start: 2012

REACTIONS (5)
  - Transplant rejection [Not Recovered/Not Resolved]
  - Renal impairment [Unknown]
  - Swelling [Unknown]
  - Pallor [Unknown]
  - Psychotic disorder [Recovering/Resolving]

NARRATIVE: CASE EVENT DATE: 20120101
